FAERS Safety Report 19992974 (Version 1)
Quarter: 2021Q4

REPORT INFORMATION
  Report Type: Spontaneous
  Country: GB (occurrence: GB)
  Receive Date: 20211026
  Receipt Date: 20211026
  Transmission Date: 20220303
  Serious: Yes (Other)
  Sender: FDA-Public Use
  Company Number: GB-SUN PHARMACEUTICAL INDUSTRIES LTD-2021RR-315642

PATIENT
  Age: 78 Year
  Sex: Female

DRUGS (4)
  1. CITALOPRAM [Suspect]
     Active Substance: CITALOPRAM HYDROBROMIDE
     Indication: Osteoporosis
     Dosage: UNK
  2. ALENDRONIC ACID [Suspect]
     Active Substance: ALENDRONIC ACID
     Indication: Osteoporosis
     Dosage: UNK
     Route: 048
  3. PAMIDRONATE [Suspect]
     Active Substance: PAMIDRONATE DISODIUM
     Indication: Osteoporosis
     Dosage: UNK
     Route: 065
  4. STRONTIUM RANELATE [Suspect]
     Active Substance: STRONTIUM RANELATE
     Indication: Osteoporosis
     Dosage: UNK
     Route: 065

REACTIONS (4)
  - Gastrooesophageal reflux disease [Unknown]
  - Iritis [Unknown]
  - Nausea [Unknown]
  - Drug ineffective [Unknown]
